FAERS Safety Report 7341315-7 (Version None)
Quarter: 2011Q1

REPORT INFORMATION
  Report Type: 
  Country: None (occurrence: None)
  Receive Date: 20110309
  Receipt Date: 20110303
  Transmission Date: 20110831
  Serious: Yes (Hospitalization, Other)
  Sender: FDA-Public Use
  Company Number: TR-ROXANE LABORATORIES, INC.-2011-RO-00249RO

PATIENT
  Age: 35 Year
  Sex: Male

DRUGS (2)
  1. RISPERDONE [Suspect]
     Indication: SCHIZOAFFECTIVE DISORDER
     Dosage: 4 MG
     Route: 048
  2. LITHIUM CARBONATE [Suspect]
     Indication: MANIA
     Dosage: 900 MG
     Route: 048

REACTIONS (2)
  - MANIA [None]
  - NEUROLEPTIC MALIGNANT SYNDROME [None]
